FAERS Safety Report 8047576-3 (Version None)
Quarter: 2012Q1

REPORT INFORMATION
  Report Type: 
  Country: None (occurrence: None)
  Receive Date: 20120116
  Receipt Date: 20120113
  Transmission Date: 20120608
  Serious: Yes (Other)
  Sender: FDA-Public Use
  Company Number: US-GLAXOSMITHKLINE-A0952176A

PATIENT
  Age: 70 Year
  Sex: Female

DRUGS (4)
  1. ATENOLOL [Concomitant]
  2. VENTOLIN DS [Concomitant]
  3. ADVAIR DISKUS 100/50 [Suspect]
     Indication: ASTHMA
     Dosage: 1PUFF TWICE PER DAY
     Route: 055
  4. CRESTOR [Concomitant]

REACTIONS (5)
  - PRODUCT QUALITY ISSUE [None]
  - CHEST DISCOMFORT [None]
  - ASTHMA [None]
  - INCORRECT STORAGE OF DRUG [None]
  - DRUG INEFFECTIVE [None]
